FAERS Safety Report 8203827-3 (Version None)
Quarter: 2012Q1

REPORT INFORMATION
  Report Type: 
  Country: None (occurrence: None)
  Receive Date: 20120313
  Receipt Date: 20120229
  Transmission Date: 20120608
  Serious: Yes (Hospitalization, Other)
  Sender: FDA-Public Use
  Company Number: US-ELI_LILLY_AND_COMPANY-US201203000548

PATIENT
  Sex: Female

DRUGS (13)
  1. LOVASTATIN [Concomitant]
  2. CALCIUM [Concomitant]
  3. POTASSIUM CHLORIDE [Concomitant]
  4. OMEPRAZOLE [Concomitant]
     Indication: GASTROOESOPHAGEAL REFLUX DISEASE
     Dosage: 20 MG, UNK
  5. ASPIRIN [Concomitant]
  6. NIACIN [Concomitant]
  7. WARFARIN SODIUM [Concomitant]
  8. EVISTA [Suspect]
     Indication: OSTEOPOROSIS
     Dosage: 60 MG, QD
     Dates: start: 19970101
  9. FUROSEMIDE [Concomitant]
  10. AMIODARONE HCL [Concomitant]
     Dosage: 50 MG, UNK
  11. CARVEDILOL [Concomitant]
  12. SYNTHROID [Concomitant]
  13. MULTI-VITAMIN [Concomitant]

REACTIONS (8)
  - PNEUMONIA [None]
  - SPINAL DISORDER [None]
  - BODY HEIGHT DECREASED [None]
  - MALAISE [None]
  - HEART VALVE OPERATION [None]
  - MUSCULOSKELETAL PAIN [None]
  - COAGULATION TIME ABNORMAL [None]
  - BACK PAIN [None]
